FAERS Safety Report 14638421 (Version 1)
Quarter: 2018Q1

REPORT INFORMATION
  Report Type: Spontaneous
  Country: HR (occurrence: HR)
  Receive Date: 20180314
  Receipt Date: 20180314
  Transmission Date: 20180509
  Serious: Yes (Hospitalization, Disabling, Other)
  Sender: FDA-Public Use
  Company Number: HR-ALLERGAN-1724113US

PATIENT
  Age: 43 Year
  Sex: Female

DRUGS (2)
  1. VISTABEL [Suspect]
     Active Substance: BOTULINUM TOXIN TYPE A
     Indication: SKIN WRINKLING
     Dosage: 3 DF, SINGLE
     Route: 030
     Dates: start: 20160219, end: 20160219
  2. VISTABEL [Suspect]
     Active Substance: BOTULINUM TOXIN TYPE A
     Dosage: 32 DF, SINGLE
     Route: 030
     Dates: start: 20151218, end: 20151218

REACTIONS (38)
  - Chest discomfort [Unknown]
  - Amnesia [Unknown]
  - Foaming at mouth [Unknown]
  - Muscle twitching [Unknown]
  - Tinnitus [Unknown]
  - Arthralgia [Unknown]
  - Headache [Unknown]
  - Abdominal pain [Unknown]
  - Urticaria [Unknown]
  - Insomnia [Unknown]
  - Fatigue [Unknown]
  - Dyspnoea [Unknown]
  - Vision blurred [Unknown]
  - Nausea [Unknown]
  - Blood pressure decreased [Unknown]
  - Illness anxiety disorder [Unknown]
  - Visual impairment [Unknown]
  - Dysuria [Unknown]
  - Speech disorder [Unknown]
  - Dysphagia [Unknown]
  - Confusional state [Unknown]
  - Dizziness postural [Unknown]
  - Choking [Unknown]
  - Muscular weakness [Unknown]
  - Vertigo [Unknown]
  - Dry mouth [Unknown]
  - Respiratory disorder [Unknown]
  - Seizure [Unknown]
  - Arrhythmia [Unknown]
  - Palpitations [Unknown]
  - Anxiety [Unknown]
  - Feeling abnormal [Unknown]
  - Malaise [Unknown]
  - Drug intolerance [Unknown]
  - Constipation [Unknown]
  - Asthenia [Unknown]
  - Alopecia [Unknown]
  - Pyrexia [Unknown]

NARRATIVE: CASE EVENT DATE: 2016
